FAERS Safety Report 16584934 (Version 1)
Quarter: 2019Q3

REPORT INFORMATION
  Report Type: Report from Study
  Country: None (occurrence: CO)
  Receive Date: 20190717
  Receipt Date: 20190717
  Transmission Date: 20191004
  Serious: Yes (Hospitalization, Other)
  Sender: FDA-Public Use
  Company Number: CO-ABBVIE-19K-036-2856812-00

PATIENT
  Age: 35 Year
  Sex: Male
  Weight: 85 kg

DRUGS (1)
  1. HUMIRA [Suspect]
     Active Substance: ADALIMUMAB
     Indication: ANKYLOSING SPONDYLITIS
     Route: 058
     Dates: start: 20180827, end: 20190510

REACTIONS (4)
  - Burns second degree [Recovering/Resolving]
  - Back pain [Recovering/Resolving]
  - Accident at home [Recovering/Resolving]
  - Burns first degree [Recovering/Resolving]

NARRATIVE: CASE EVENT DATE: 20190624
